FAERS Safety Report 15609923 (Version 1)
Quarter: 2018Q4

REPORT INFORMATION
  Report Type: Spontaneous
  Country: US (occurrence: US)
  Receive Date: 20181113
  Receipt Date: 20181113
  Transmission Date: 20190205
  Serious: Yes (Life-Threatening, Other)
  Sender: FDA-Public Use
  Company Number: US-ACCORD-091287

PATIENT
  Age: 65 Year
  Sex: Male

DRUGS (3)
  1. PREDNISONE. [Suspect]
     Active Substance: PREDNISONE
     Indication: IMMUNOSUPPRESSION
     Dosage: INITIALLY TAPERED AND THEN WEANED OF, HIGH DOSE
     Route: 048
  2. PYRIDOSTIGMINE [Suspect]
     Active Substance: PYRIDOSTIGMINE
     Indication: MYASTHENIA GRAVIS
  3. MYCOPHENOLIC ACID. [Suspect]
     Active Substance: MYCOPHENOLIC ACID
     Indication: IMMUNOSUPPRESSION

REACTIONS (3)
  - Histoplasmosis [Recovering/Resolving]
  - Pneumococcal infection [Recovering/Resolving]
  - Cytomegalovirus colitis [Recovering/Resolving]
